FAERS Safety Report 8875621 (Version 1)
Quarter: 2012Q4

REPORT INFORMATION
  Report Type: 
  Country: DE (occurrence: DE)
  Receive Date: 20121023
  Receipt Date: 20121023
  Transmission Date: 20130627
  Serious: Yes (Hospitalization, Other)
  Sender: FDA-Public Use
  Company Number: PHHY2012DE093591

PATIENT
  Sex: Female

DRUGS (10)
  1. CARBAMAZEPINE [Suspect]
  2. OPIPRAMOL [Suspect]
     Dosage: 1 mg, daily
  3. RISPERIDONE [Suspect]
     Dosage: 6 mg, UNK
  4. ZOPICLONE [Suspect]
     Dosage: 7.5 mg, UNK
  5. HALDOL [Suspect]
  6. FLUANXOL [Suspect]
  7. ABILIFY [Suspect]
  8. QUETIAPINE [Suspect]
  9. ZYPREXA [Suspect]
  10. TAVOR [Suspect]

REACTIONS (42)
  - Coma [Unknown]
  - Borrelia infection [Unknown]
  - Dental discomfort [Unknown]
  - Gastritis [Unknown]
  - Gastric ulcer [Unknown]
  - Inflammation [Unknown]
  - Alopecia [Recovering/Resolving]
  - Abdominal pain upper [Recovering/Resolving]
  - Gastrooesophageal reflux disease [Unknown]
  - Arthralgia [Recovered/Resolved]
  - Mood altered [Unknown]
  - Asthenia [Unknown]
  - Pruritus [Recovered/Resolved]
  - Sleep disorder [Recovering/Resolving]
  - Muscle spasms [Unknown]
  - Tooth loss [Unknown]
  - Amenorrhoea [Unknown]
  - Renal disorder [Unknown]
  - Visual impairment [Unknown]
  - Renal pain [Recovering/Resolving]
  - Pain in extremity [Recovered/Resolved]
  - Hypoglycaemia [Unknown]
  - Body temperature increased [Unknown]
  - Liver function test abnormal [Recovered/Resolved]
  - White blood cell count increased [Unknown]
  - Hypersensitivity [Unknown]
  - Neuralgia [Unknown]
  - Coordination abnormal [Unknown]
  - Incontinence [Recovering/Resolving]
  - Pleurothotonus [Recovering/Resolving]
  - Eye pain [Unknown]
  - Mutism [Unknown]
  - Memory impairment [Unknown]
  - Burning sensation [Unknown]
  - Feeling cold [Unknown]
  - Rash [Unknown]
  - Heart rate increased [Unknown]
  - Pyrexia [Unknown]
  - Nausea [Unknown]
  - Vomiting [Unknown]
  - Unresponsive to stimuli [Unknown]
  - Dyspepsia [Unknown]
